FAERS Safety Report 24567843 (Version 3)
Quarter: 2025Q2

REPORT INFORMATION
  Report Type: Report from Study
  Country: US (occurrence: US)
  Receive Date: 20241031
  Receipt Date: 20250601
  Transmission Date: 20250716
  Serious: Yes (Life-Threatening)
  Sender: STEMLINE THERAPEUTICS
  Company Number: US-STEMLINE THERAPEUTICS, INC-2024-STML-US005762

PATIENT

DRUGS (1)
  1. ORSERDU [Suspect]
     Active Substance: ELACESTRANT
     Indication: Breast cancer
     Dosage: 345 MG, DAILY
     Route: 048
     Dates: start: 20241005

REACTIONS (1)
  - Neck pain [Recovered/Resolved]

NARRATIVE: CASE EVENT DATE: 20241017
